FAERS Safety Report 18431287 (Version 1)
Quarter: 2020Q4

REPORT INFORMATION
  Report Type: Spontaneous
  Country: HU (occurrence: HU)
  Receive Date: 20201027
  Receipt Date: 20201027
  Transmission Date: 20210114
  Serious: Yes (Disabling)
  Sender: FDA-Public Use
  Company Number: HU-TEVA-2020-HU-1840998

PATIENT
  Age: 68 Year
  Sex: Male

DRUGS (25)
  1. FENTANYL. [Suspect]
     Active Substance: FENTANYL
     Dates: start: 20200117, end: 20200117
  2. CONTROLOC [Suspect]
     Active Substance: PANTOPRAZOLE SODIUM
     Dosage: DF = UNKNOWN,1 DOSAGE FORMS
     Dates: start: 20200117, end: 20200129
  3. CONTROLOC [Suspect]
     Active Substance: PANTOPRAZOLE SODIUM
     Dosage: DF = UNKNOWN,1 DOSAGE FORMS
     Dates: start: 20200128, end: 20200129
  4. FENTANYL. [Suspect]
     Active Substance: FENTANYL
     Indication: EPIDURAL ANAESTHESIA
     Dosage: 2 ML
     Dates: start: 20200119, end: 20200119
  5. CLEXANE [Suspect]
     Active Substance: ENOXAPARIN SODIUM
     Dosage: 0.4 ML
     Dates: start: 202001, end: 20200129
  6. SUPRAX [Suspect]
     Active Substance: CEFIXIME
     Dates: start: 20200122, end: 20200127
  7. TRAMADOL. [Suspect]
     Active Substance: TRAMADOL
     Dates: start: 20200120, end: 20200120
  8. ESMERON [Suspect]
     Active Substance: ROCURONIUM BROMIDE
     Dates: start: 20200117, end: 20200117
  9. SUFENTANIL [Suspect]
     Active Substance: SUFENTANIL
     Dosage: 40 MCG
     Dates: start: 20200117, end: 20200117
  10. PROPOFOL. [Suspect]
     Active Substance: PROPOFOL
     Dosage: 250 MG
     Dates: start: 20200117, end: 20200117
  11. BRIDION [Suspect]
     Active Substance: SUGAMMADEX
     Dosage: 50 MG
     Route: 065
     Dates: start: 20200117, end: 20200117
  12. ALGOPYRIN (METAMIZOLE SODIUM) [Suspect]
     Active Substance: METAMIZOLE SODIUM
     Route: 065
     Dates: start: 20200120, end: 20200120
  13. ALGOPYRIN (METAMIZOLE SODIUM) [Suspect]
     Active Substance: METAMIZOLE SODIUM
     Dosage: 2 GRAM
     Dates: start: 20200117, end: 20200117
  14. CLAFORAN [Suspect]
     Active Substance: CEFOTAXIME SODIUM
     Dosage: 1 GRAM
     Route: 065
     Dates: start: 20200117, end: 20200121
  15. XANAX [Suspect]
     Active Substance: ALPRAZOLAM
     Indication: PREMEDICATION
     Dosage: 0.25 MG
     Route: 065
     Dates: start: 20200117, end: 20200117
  16. PARACETAMOL [Suspect]
     Active Substance: ACETAMINOPHEN
     Indication: PREMEDICATION
     Dosage: 1 GRAM
     Route: 065
     Dates: start: 20200117, end: 20200117
  17. NO-SPA [Suspect]
     Active Substance: DROTAVERINE HYDROCHLORIDE
     Dates: start: 20200120, end: 20200120
  18. ONDANSETRON [Suspect]
     Active Substance: ONDANSETRON
     Dosage: 4  MG
     Dates: start: 20200117, end: 20200117
  19. BUPIVACAINE. [Suspect]
     Active Substance: BUPIVACAINE
     Indication: EPIDURAL ANAESTHESIA
     Dates: start: 20200117, end: 20200117
  20. ADRENALINE [Suspect]
     Active Substance: EPINEPHRINE
     Indication: EPIDURAL ANAESTHESIA
     Dates: start: 20200117, end: 20200117
  21. LIDOCAINE. [Suspect]
     Active Substance: LIDOCAINE
     Indication: EPIDURAL ANAESTHESIA
     Dates: start: 20200117, end: 20200117
  22. FENTANYL. [Suspect]
     Active Substance: FENTANYL
     Dosage: 2 ML
     Dates: start: 20200117, end: 20200117
  23. KLION [METRONIDAZOLE] [Suspect]
     Active Substance: METRONIDAZOLE
     Dosage: 500 MG
     Route: 065
     Dates: start: 20200117, end: 20200117
  24. KLION [METRONIDAZOLE] [Suspect]
     Active Substance: METRONIDAZOLE
     Dates: start: 20200117, end: 20200127
  25. CLAFORAN [Suspect]
     Active Substance: CEFOTAXIME SODIUM
     Dosage: 1 GRAM
     Dates: start: 20200117, end: 20200117

REACTIONS (1)
  - Deafness neurosensory [Not Recovered/Not Resolved]

NARRATIVE: CASE EVENT DATE: 20200124
